FAERS Safety Report 6828163-9 (Version None)
Quarter: 2010Q3

REPORT INFORMATION
  Report Type: 
  Country: None (occurrence: None)
  Receive Date: 20100709
  Receipt Date: 20100628
  Transmission Date: 20110219
  Serious: Yes (Hospitalization)
  Sender: FDA-Public Use
  Company Number: JP-ROCHE-709552

PATIENT
  Sex: Female

DRUGS (11)
  1. TOCILIZUMAB [Suspect]
     Indication: JUVENILE ARTHRITIS
     Route: 041
     Dates: start: 20100401, end: 20100401
  2. TOCILIZUMAB [Suspect]
     Route: 041
     Dates: start: 20100415, end: 20100415
  3. TOCILIZUMAB [Suspect]
     Dosage: DOSE UNCERTAIN.
     Route: 041
     Dates: start: 20100511
  4. ZOSYN [Suspect]
     Indication: JUVENILE ARTHRITIS
     Route: 042
     Dates: start: 20100516, end: 20100519
  5. PREDNISOLONE [Concomitant]
     Route: 048
     Dates: end: 20100415
  6. PREDNISOLONE [Concomitant]
     Route: 048
     Dates: start: 20100416, end: 20100513
  7. PREDNISOLONE [Concomitant]
     Route: 048
     Dates: start: 20100514, end: 20100528
  8. PREDNISOLONE [Concomitant]
     Route: 048
     Dates: start: 20100529
  9. RHEUMATREX [Concomitant]
     Route: 048
  10. FOLIAMIN [Concomitant]
     Dosage: FORM: PERORAL AGENT
     Route: 048
  11. IBRUPROFEN [Concomitant]
     Route: 048
     Dates: start: 20100401, end: 20100414

REACTIONS (3)
  - BRONCHITIS [None]
  - ENTERITIS INFECTIOUS [None]
  - NEUTROPENIA [None]
